FAERS Safety Report 23970039 (Version 1)
Quarter: 2024Q2

REPORT INFORMATION
  Report Type: Spontaneous
  Country: US (occurrence: US)
  Receive Date: 20240613
  Receipt Date: 20240613
  Transmission Date: 20240716
  Serious: No
  Sender: FDA-Public Use
  Company Number: US-BIOGEN-2024BI01268000

PATIENT
  Age: 16 Year
  Sex: Male
  Weight: 49.4 kg

DRUGS (4)
  1. SKYCLARYS [Suspect]
     Active Substance: OMAVELOXOLONE
     Indication: Friedreich^s ataxia
     Dosage: 150MG ONCE DAILY
     Route: 050
     Dates: start: 20230707
  2. SKYCLARYS [Suspect]
     Active Substance: OMAVELOXOLONE
     Dosage: 150MG ONCE DAILY
     Route: 050
     Dates: start: 202309
  3. metoprolol SUCCINATE (TOPROL-XL) [Concomitant]
     Indication: Product used for unknown indication
     Dosage: TAKE 1 TABLET (25 MG TOTAL) BY MOUTH DAILY.
     Route: 050
     Dates: start: 20230918
  4. DENTA 5000 PLUS [Concomitant]
     Active Substance: SODIUM FLUORIDE
     Indication: Calcinosis
     Dosage: APPLY DAILY AS DIRECTED BY DOCTOR FOR DECALCIFICATION
     Route: 050

REACTIONS (4)
  - Weight increased [Unknown]
  - Fall [Recovered/Resolved]
  - Blood triglycerides increased [Unknown]
  - High density lipoprotein decreased [Unknown]

NARRATIVE: CASE EVENT DATE: 20231101
